FAERS Safety Report 7647448-X (Version None)
Quarter: 2011Q3

REPORT INFORMATION
  Report Type: 
  Country: None (occurrence: None)
  Receive Date: 20110801
  Receipt Date: 20110726
  Transmission Date: 20111222
  Serious: Yes (Hospitalization)
  Sender: FDA-Public Use
  Company Number: US-GENZYME-FABR-1002036

PATIENT
  Sex: Male

DRUGS (8)
  1. ACETAMINOPHEN [Concomitant]
     Indication: PREMEDICATION
     Dosage: 1000 MG, UNK
  2. LORCET-HD [Concomitant]
     Indication: PAIN
     Dosage: 10 MG, UNK
  3. FABRAZYME [Suspect]
     Dosage: 70 MG, Q4W
     Route: 042
     Dates: start: 20030101
  4. BENADRYL [Concomitant]
     Indication: PREMEDICATION
     Dosage: 50 MG, UNK
  5. FABRAZYME [Suspect]
     Indication: FABRY'S DISEASE
     Dosage: 35 MG, Q2W
     Route: 042
     Dates: start: 20080101
  6. XANAX [Concomitant]
     Indication: ANXIETY
     Dosage: 1 MG, BID
  7. TEGRETOL-XR [Concomitant]
     Indication: PARAESTHESIA
     Dosage: 100 MG, BID
  8. DILANTIN [Concomitant]
     Indication: PARAESTHESIA
     Dosage: 200 MG, BID

REACTIONS (2)
  - HERPES ZOSTER [None]
  - PYREXIA [None]
